FAERS Safety Report 5819050-3 (Version None)
Quarter: 2008Q3

REPORT INFORMATION
  Report Type: 
  Country: None (occurrence: None)
  Receive Date: 20080723
  Receipt Date: 20080718
  Transmission Date: 20090109
  Serious: Yes (Death, Life-Threatening)
  Sender: FDA-Public Use
  Company Number: US-BAYER-200822265GPV

PATIENT
  Age: 79 Year
  Sex: Female

DRUGS (19)
  1. APROTININ [Suspect]
     Indication: COAGULATION TIME ABNORMAL
  2. APROTININ [Suspect]
  3. APROTININ [Suspect]
  4. APROTININ [Suspect]
  5. NOVOSEVEN [Suspect]
     Indication: COAGULATION TIME ABNORMAL
  6. PROTAMINE SULFATE [Suspect]
     Indication: COAGULATION TIME ABNORMAL
  7. PROTAMINE SULFATE [Suspect]
  8. AMPICILLIN [Concomitant]
     Indication: BACTERAEMIA
     Route: 042
  9. GENTAMICIN [Concomitant]
     Indication: BACTERAEMIA
     Route: 042
  10. RED BLOOD CELLS [Concomitant]
     Indication: SURGERY
  11. HEPARIN [Concomitant]
     Indication: COAGULATION TIME ABNORMAL
  12. EPINEPHRINE [Concomitant]
     Indication: POSITIVE CARDIAC INOTROPIC EFFECT
  13. FRESH FROZEN PLASMA [Concomitant]
     Indication: COAGULOPATHY
  14. PLATELETS [Concomitant]
     Indication: COAGULOPATHY
  15. CRYOPRECIPITATED AHF [Concomitant]
     Indication: COAGULOPATHY
  16. ALBUTEROL [Concomitant]
     Indication: OBSTRUCTIVE AIRWAYS DISORDER
     Route: 055
  17. NOREPINEPHRINE [Concomitant]
     Indication: CARDIAC DISORDER
  18. MILRINONE LACTATE [Concomitant]
     Indication: CARDIAC DISORDER
  19. VASOPRESSIN [Concomitant]
     Indication: CARDIAC DISORDER

REACTIONS (5)
  - AORTIC THROMBOSIS [None]
  - CARDIAC ARREST [None]
  - INTRACARDIAC THROMBUS [None]
  - PROCEDURAL COMPLICATION [None]
  - RIGHT VENTRICULAR FAILURE [None]
